FAERS Safety Report 4871715-6 (Version None)
Quarter: 2005Q4

REPORT INFORMATION
  Report Type: 
  Country: None (occurrence: None)
  Receive Date: 20051230
  Receipt Date: 20051226
  Transmission Date: 20060501
  Serious: Yes (Hospitalization)
  Sender: FDA-Public Use
  Company Number: 6019484

PATIENT
  Age: 79 Year
  Sex: Female

DRUGS (3)
  1. LODOZ                 (HYDROCHLOROTHIAZIDE, BISOPROLOL FUMARATE) [Suspect]
     Indication: ESSENTIAL HYPERTENSION
     Dosage: 1 DOSAGE
     Route: 048
  2. OXAZEPAM [Suspect]
     Indication: ANXIETY
     Dosage: 2 DOSAGE
     Route: 048
  3. DEBRIDAT         (TRIMEBUTINE MALEATE) [Concomitant]

REACTIONS (4)
  - CHRONIC OBSTRUCTIVE PULMONARY DISEASE [None]
  - CONSTIPATION [None]
  - FALL [None]
  - HYPONATRAEMIA [None]
